FAERS Safety Report 24604190 (Version 1)
Quarter: 2024Q4

REPORT INFORMATION
  Report Type: Spontaneous
  Country: NO (occurrence: NO)
  Receive Date: 20241111
  Receipt Date: 20241111
  Transmission Date: 20250115
  Serious: Yes (Death, Life-Threatening, Hospitalization, Other)
  Sender: MERCK
  Company Number: None

PATIENT
  Age: 58 Year
  Sex: Female

DRUGS (1)
  1. TEMODAL [Suspect]
     Active Substance: TEMOZOLOMIDE
     Indication: Glioblastoma
     Route: 048
     Dates: start: 20240729, end: 20240822

REACTIONS (3)
  - Aplastic anaemia [Fatal]
  - Pseudomonas infection [Fatal]
  - Sepsis [Fatal]

NARRATIVE: CASE EVENT DATE: 20240822
